FAERS Safety Report 13357985 (Version 1)
Quarter: 2017Q1

REPORT INFORMATION
  Report Type: Spontaneous
  Country: US (occurrence: US)
  Receive Date: 20170320
  Receipt Date: 20170320
  Transmission Date: 20170429
  Serious: No
  Sender: FDA-Public Use
  Company Number: None

PATIENT
  Age: 53 Year
  Sex: Female

DRUGS (2)
  1. STELARA [Suspect]
     Active Substance: USTEKINUMAB
     Indication: PSORIASIS
     Dosage: WEEK 0, 4, THE
     Route: 058
     Dates: start: 20170318
  2. STELARA [Suspect]
     Active Substance: USTEKINUMAB
     Indication: PSORIATIC ARTHROPATHY
     Dosage: WEEK 0, 4, THE
     Route: 058
     Dates: start: 20170318

REACTIONS (2)
  - Nausea [None]
  - Fatigue [None]

NARRATIVE: CASE EVENT DATE: 20170318
